FAERS Safety Report 9882967 (Version 2)
Quarter: 2014Q2

REPORT INFORMATION
  Report Type: Spontaneous
  Country: IT (occurrence: None)
  Receive Date: 20140204
  Receipt Date: 20140401
  Transmission Date: 20141212
  Serious: Yes (Other)
  Sender: FDA-Public Use
  Company Number: FK201400325

PATIENT
  Age: 59 Year
  Sex: Male
  Weight: 77 kg

DRUGS (4)
  1. IRINOTECAN (MANUFACTURER UNKNOWN) (IRINOTECAN) (IRINOTECAN) [Suspect]
     Indication: PRODUCT USED FOR UNKNOWN INDICATION
     Dosage: CYCLICAL
     Route: 042
     Dates: start: 20121223, end: 20130101
  2. ERBITUX [Suspect]
     Indication: COLON CANCER METASTATIC
     Dosage: CYCLICAL
     Route: 042
     Dates: start: 20121223, end: 20130101
  3. FLUOROURACIL (FLUOROURACIL) (FLUOROURACIL) [Suspect]
     Indication: PRODUCT USED FOR UNKNOWN INDICATION
     Dosage: CYCLICAL
     Route: 040
     Dates: start: 20121223, end: 20130101
  4. LEVOFOLINIC ACID (LEVOFOLINIC ACID) [Concomitant]

REACTIONS (1)
  - Atrial fibrillation [None]
